FAERS Safety Report 4522771-6 (Version None)
Quarter: 2004Q4

REPORT INFORMATION
  Report Type: 
  Country: None (occurrence: None)
  Receive Date: 20041208
  Receipt Date: 20041122
  Transmission Date: 20050328
  Serious: Yes (Disabling)
  Sender: FDA-Public Use
  Company Number: SU-2004-002873

PATIENT
  Age: 72 Year
  Sex: Female

DRUGS (7)
  1. OLMESARTAN [Suspect]
     Dosage: 40 MG QD PO
     Route: 048
  2. NIFEDIPINE [Suspect]
     Dosage: 40 MG QD PO
     Route: 048
  3. SENNA LEAF [Suspect]
     Dosage: 36 MG QD PO
     Route: 048
  4. DIPYRIDAMOLE [Suspect]
     Dosage: 37.5 MG QD PO
     Route: 048
  5. VALISONE [Concomitant]
  6. KETOPROFEN [Concomitant]
  7. LIMAPROST [Concomitant]

REACTIONS (3)
  - ARRHYTHMIA [None]
  - HYPERSENSITIVITY [None]
  - METABOLIC DISORDER [None]
